FAERS Safety Report 7207324-3 (Version None)
Quarter: 2010Q4

REPORT INFORMATION
  Report Type: 
  Country: None (occurrence: None)
  Receive Date: 20101221
  Receipt Date: 20101208
  Transmission Date: 20110411
  Serious: Yes (Other)
  Sender: FDA-Public Use
  Company Number: 022749

PATIENT
  Sex: Female
  Weight: 68 kg

DRUGS (2)
  1. CIMZIA [Suspect]
     Indication: CROHN'S DISEASE
     Dosage: 200 MG 1X4 WEEKS SUBCUTANEOUS
     Route: 058
     Dates: start: 20091005, end: 20100521
  2. CIMZIA [Suspect]
     Indication: FISTULA
     Dosage: 200 MG 1X4 WEEKS SUBCUTANEOUS
     Route: 058
     Dates: start: 20091005, end: 20100521

REACTIONS (5)
  - ABSCESS [None]
  - FISTULA [None]
  - IMPAIRED HEALING [None]
  - OBSTRUCTION [None]
  - UNEVALUABLE EVENT [None]
